FAERS Safety Report 7866789-4 (Version None)
Quarter: 2011Q4

REPORT INFORMATION
  Report Type: 
  Country: None (occurrence: None)
  Receive Date: 20111028
  Receipt Date: 20110819
  Transmission Date: 20120403
  Serious: No
  Sender: FDA-Public Use
  Company Number: US-GLAXOSMITHKLINE-A0941738A

PATIENT
  Age: 43 Year
  Sex: Female

DRUGS (12)
  1. FERROUS SULFATE TAB [Concomitant]
  2. FOLIC ACID [Concomitant]
  3. CYCLOPHOSPHAMIDE [Concomitant]
  4. PROAIR HFA [Concomitant]
  5. SINGULAIR [Concomitant]
  6. LORATADINE [Concomitant]
  7. VITAMIN B-12 [Concomitant]
  8. ALBUTEROL [Concomitant]
     Route: 055
  9. ADVAIR DISKUS 100/50 [Suspect]
     Indication: ASTHMA
     Dosage: 1PUFF TWICE PER DAY
     Route: 055
     Dates: start: 20110818
  10. VITAMIN D SUPPLEMENT [Concomitant]
  11. CIMETIDINE [Concomitant]
  12. IPRATROPIUM BROMIDE [Concomitant]

REACTIONS (3)
  - DYSGEUSIA [None]
  - HEADACHE [None]
  - IRRITABILITY [None]
